FAERS Safety Report 15196322 (Version 1)
Quarter: 2018Q3

REPORT INFORMATION
  Report Type: Spontaneous
  Country: US (occurrence: US)
  Receive Date: 20180626
  Receipt Date: 20180626
  Transmission Date: 20181010
  Serious: Yes (Life-Threatening, Hospitalization)
  Sender: FDA-Public Use
  Company Number: None

PATIENT
  Age: 89 Year
  Sex: Female
  Weight: 93 kg

DRUGS (8)
  1. CRANBERRY TABLET [Concomitant]
  2. PAROXETINE. [Suspect]
     Active Substance: PAROXETINE
     Indication: ANXIETY
     Route: 048
     Dates: start: 20180501, end: 20180522
  3. VITAMIN D3 [Concomitant]
     Active Substance: CHOLECALCIFEROL
  4. LOSARTAN. [Concomitant]
     Active Substance: LOSARTAN
  5. VITAMIN E [Concomitant]
     Active Substance: .ALPHA.-TOCOPHEROL
  6. TRAZODONE [Suspect]
     Active Substance: TRAZODONE HYDROCHLORIDE
     Indication: ANXIETY
     Route: 048
     Dates: start: 20180501, end: 20180522
  7. LEVOTHYROXINE. [Concomitant]
     Active Substance: LEVOTHYROXINE
  8. MULTIVITAMIN [Concomitant]
     Active Substance: VITAMINS

REACTIONS (5)
  - Hyperventilation [None]
  - Hyponatraemia [None]
  - Anxiety [None]
  - Fall [None]
  - Facial paralysis [None]

NARRATIVE: CASE EVENT DATE: 20180521
